FAERS Safety Report 9976196 (Version 1)
Quarter: 2014Q1

REPORT INFORMATION
  Report Type: Report from Study
  Country: US (occurrence: US)
  Receive Date: 20140306
  Receipt Date: 20140306
  Transmission Date: 20141002
  Serious: No
  Sender: FDA-Public Use
  Company Number: US-ABBVIE-13P-163-1166923-00

PATIENT
  Age: 30 Year
  Sex: Female

DRUGS (9)
  1. HUMIRA [Suspect]
     Indication: CROHN^S DISEASE
     Dates: start: 20131025, end: 20131025
  2. HUMIRA [Suspect]
  3. IMURAN [Concomitant]
     Indication: CROHN^S DISEASE
  4. PROTONIX [Concomitant]
     Indication: GASTROOESOPHAGEAL REFLUX DISEASE
  5. CELEXA [Concomitant]
     Indication: DEPRESSION
  6. BENADRYL [Concomitant]
     Indication: INSOMNIA
     Dosage: 50-75 MG
  7. ENTOCORT [Concomitant]
     Indication: CROHN^S DISEASE
  8. PHENERGAN [Concomitant]
     Indication: NAUSEA
  9. PRENATAL VITAMINS [Concomitant]
     Indication: MINERAL SUPPLEMENTATION

REACTIONS (2)
  - Oropharyngeal pain [Not Recovered/Not Resolved]
  - Headache [Not Recovered/Not Resolved]
